FAERS Safety Report 6987606-0 (Version None)
Quarter: 2010Q3

REPORT INFORMATION
  Report Type: 
  Country: None (occurrence: None)
  Receive Date: 20100916
  Receipt Date: 20100902
  Transmission Date: 20110219
  Serious: Yes (Hospitalization)
  Sender: FDA-Public Use
  Company Number: NL-CELGENEUS-114-21880-10080030

PATIENT
  Sex: Male
  Weight: 89 kg

DRUGS (13)
  1. REVLIMID [Suspect]
     Indication: MULTIPLE MYELOMA
     Route: 048
     Dates: start: 20100726, end: 20100801
  2. REVLIMID [Suspect]
     Route: 048
     Dates: start: 20100818, end: 20100825
  3. MELPHALAN HYDROCHLORIDE [Suspect]
     Indication: MULTIPLE MYELOMA
     Route: 048
     Dates: start: 20100726, end: 20100729
  4. MELPHALAN HYDROCHLORIDE [Suspect]
     Route: 048
     Dates: start: 20100818, end: 20100821
  5. PREDNISONE [Suspect]
     Indication: MULTIPLE MYELOMA
     Route: 048
     Dates: start: 20100726, end: 20100729
  6. PREDNISONE [Suspect]
     Route: 048
     Dates: start: 20100818, end: 20100821
  7. COTRIM [Suspect]
     Indication: PROPHYLAXIS
     Route: 048
     Dates: start: 20100726
  8. METOPROLOL TARTRATE [Concomitant]
     Indication: HYPERTENSION
     Route: 048
     Dates: start: 20090101
  9. TRIAMTERENE AND HYDROCHLOROTHIAZIDE [Concomitant]
     Indication: HYPERTENSION
     Dosage: 50/25
     Route: 048
  10. FRAXODI [Concomitant]
     Indication: PULMONARY EMBOLISM
     Route: 058
     Dates: start: 20100426
  11. FLUCONAZOLE [Concomitant]
     Indication: PROPHYLAXIS
     Route: 048
     Dates: start: 20100726
  12. VALACYCLOVIR HYDROCHLORIDE [Concomitant]
     Indication: PROPHYLAXIS
     Route: 048
     Dates: start: 20100726
  13. PANTOPRAZOLE SODIUM [Concomitant]
     Indication: PROPHYLAXIS
     Route: 048
     Dates: start: 20100726

REACTIONS (5)
  - DIARRHOEA [None]
  - ERYTHEMA [None]
  - PURPURA [None]
  - RASH [None]
  - SKIN EXFOLIATION [None]
